FAERS Safety Report 24183290 (Version 1)
Quarter: 2024Q3

REPORT INFORMATION
  Report Type: Spontaneous
  Country: AU (occurrence: AU)
  Receive Date: 20240807
  Receipt Date: 20240807
  Transmission Date: 20241017
  Serious: Yes (Death)
  Sender: AMGEN
  Company Number: AU-AMGEN-AUSSP2020191575

PATIENT
  Age: 76 Year
  Sex: Female

DRUGS (4)
  1. ARANESP [Suspect]
     Active Substance: DARBEPOETIN ALFA
     Indication: Renal failure
     Dosage: 80 MICROGRAM (0.4 ML), Q8WK
     Route: 058
     Dates: start: 202011
  2. ARANESP [Suspect]
     Active Substance: DARBEPOETIN ALFA
     Indication: Haemoglobin abnormal
     Dosage: UNK
     Route: 058
  3. ARANESP [Suspect]
     Active Substance: DARBEPOETIN ALFA
     Dosage: UNK
     Route: 058
  4. WARFARIN [Concomitant]
     Active Substance: WARFARIN
     Dosage: UNK
     Route: 065

REACTIONS (5)
  - Cardiac failure congestive [Fatal]
  - Pulmonary congestion [Fatal]
  - Inappropriate schedule of product administration [Unknown]
  - Device difficult to use [Unknown]
  - Accidental exposure to product [Unknown]

NARRATIVE: CASE EVENT DATE: 20201101
